FAERS Safety Report 13499130 (Version 4)
Quarter: 2021Q1

REPORT INFORMATION
  Report Type: Spontaneous
  Country: JP (occurrence: JP)
  Receive Date: 20170501
  Receipt Date: 20210226
  Transmission Date: 20210419
  Serious: Yes (Other)
  Sender: FDA-Public Use
  Company Number: JP-PFIZER INC-2017181243

PATIENT
  Age: 71 Year
  Sex: Male

DRUGS (3)
  1. TS?1 [Suspect]
     Active Substance: GIMERACIL\OTERACIL\TEGAFUR
     Indication: GASTRIC CANCER
     Dosage: UNK, CYCLIC
  2. NAB?PACLITAXEL [Concomitant]
     Active Substance: PACLITAXEL
     Indication: GASTRIC CANCER
     Dosage: 260 MG/M2, CYCLIC (ON DAY 1, EVERY 21 DAYS AS SECOND?LINE CHEMOTHERAPY)
  3. CALCIUM FOLINATE [Suspect]
     Active Substance: LEUCOVORIN CALCIUM
     Indication: GASTRIC CANCER
     Dosage: UNK, CYCLIC

REACTIONS (6)
  - Neutropenia [Recovered/Resolved]
  - Mucosal inflammation [Recovering/Resolving]
  - Constipation [Recovering/Resolving]
  - Myalgia [Recovering/Resolving]
  - Peripheral sensory neuropathy [Recovering/Resolving]
  - Decreased appetite [Recovering/Resolving]
